FAERS Safety Report 4509705-5 (Version None)
Quarter: 2004Q4

REPORT INFORMATION
  Report Type: 
  Country: None (occurrence: None)
  Receive Date: 20041119
  Receipt Date: 20041103
  Transmission Date: 20050328
  Serious: Yes (Hospitalization)
  Sender: FDA-Public Use
  Company Number: USA041183064

PATIENT
  Sex: Female

DRUGS (1)
  1. FORTEO [Suspect]

REACTIONS (5)
  - ASTHMA [None]
  - BRONCHITIS CHRONIC [None]
  - CHRONIC OBSTRUCTIVE AIRWAYS DISEASE [None]
  - DISEASE RECURRENCE [None]
  - PNEUMONIA [None]
